FAERS Safety Report 7993494-6 (Version None)
Quarter: 2011Q4

REPORT INFORMATION
  Report Type: 
  Country: None (occurrence: None)
  Receive Date: 20111219
  Receipt Date: 20111208
  Transmission Date: 20120403
  Serious: Yes (Hospitalization, Other)
  Sender: FDA-Public Use
  Company Number: SE-ASTRAZENECA-2011SE67957

PATIENT
  Age: 22 Year
  Sex: Female

DRUGS (4)
  1. FURADANTIN [Concomitant]
     Route: 048
  2. MEROPENEM [Suspect]
     Indication: BACTERIAL PYELONEPHRITIS
     Route: 042
     Dates: start: 20111025, end: 20111025
  3. LERGIGAN [Concomitant]
     Route: 048
  4. POSTAFEN [Concomitant]
     Route: 048

REACTIONS (6)
  - DYSPNOEA [None]
  - NAUSEA [None]
  - ANGIOEDEMA [None]
  - SYNCOPE [None]
  - MATERNAL EXPOSURE DURING PREGNANCY [None]
  - CHEST PAIN [None]
